FAERS Safety Report 5451832-2 (Version None)
Quarter: 2007Q3

REPORT INFORMATION
  Report Type: 
  Country: None (occurrence: None)
  Receive Date: 20070912
  Receipt Date: 20070829
  Transmission Date: 20080115
  Serious: Yes (Hospitalization)
  Sender: FDA-Public Use
  Company Number: 160807ISR

PATIENT
  Age: 46 Year
  Sex: Female

DRUGS (7)
  1. COPAXONE [Suspect]
     Dosage: 20 MG (20 MG, 1 IN 1 D)
     Route: 058
     Dates: start: 20070701
  2. PREGABALIN [Concomitant]
  3. TOLPERISONE [Concomitant]
  4. CYPROTERONE ACETATE [Concomitant]
  5. ZOPICLONE [Concomitant]
  6. DIANE [Concomitant]
  7. IODINE [Concomitant]

REACTIONS (1)
  - INTRACRANIAL VENOUS SINUS THROMBOSIS [None]
